FAERS Safety Report 5928013-9 (Version None)
Quarter: 2008Q4

REPORT INFORMATION
  Report Type: 
  Country: None (occurrence: None)
  Receive Date: 20081021
  Receipt Date: 20081014
  Transmission Date: 20090506
  Serious: Yes (Other)
  Sender: FDA-Public Use
  Company Number: APP200800966

PATIENT
  Age: 65 Year
  Sex: Female

DRUGS (5)
  1. HEPARIN SODIUM INJECTION [Suspect]
     Indication: ANTICOAGULANT THERAPY
  2. LOVENOX [Suspect]
     Indication: DRUG USE FOR UNKNOWN INDICATION
     Dosage: SUBCUTANEOUS
     Route: 058
  3. PLAVIX [Suspect]
     Indication: DRUG USE FOR UNKNOWN INDICATION
     Dosage: ORAL
     Route: 048
  4. ASPIRIN [Suspect]
     Indication: DRUG USE FOR UNKNOWN INDICATION
     Dosage: 81 MG, ORAL
     Route: 048
  5. WARFARIN SODIUM [Suspect]
     Indication: ANTICOAGULANT THERAPY

REACTIONS (3)
  - ANTICOAGULATION DRUG LEVEL BELOW THERAPEUTIC [None]
  - STENT OCCLUSION [None]
  - TRANSIENT ISCHAEMIC ATTACK [None]
